FAERS Safety Report 5775520-8 (Version None)
Quarter: 2008Q2

REPORT INFORMATION
  Report Type: 
  Country: None (occurrence: None)
  Receive Date: 20080601
  Receipt Date: 20080318
  Transmission Date: 20081010
  Serious: No
  Sender: FDA-Public Use
  Company Number: US200711002998

PATIENT
  Age: 63 Year
  Sex: Male

DRUGS (15)
  1. BYETTA [Suspect]
     Indication: TYPE 2 DIABETES MELLITUS
     Dosage: 5 UG, 2/D, SUBCUTANEOUS ; 10 UG, 2/D, SUBCUTANEOUS ; 5 UG, 2/D, SUBCUTANEOUS
     Route: 058
     Dates: start: 20060403, end: 20060501
  2. BYETTA [Suspect]
     Indication: TYPE 2 DIABETES MELLITUS
     Dosage: 5 UG, 2/D, SUBCUTANEOUS ; 10 UG, 2/D, SUBCUTANEOUS ; 5 UG, 2/D, SUBCUTANEOUS
     Route: 058
     Dates: start: 20060501
  3. ALLOPURINOL [Concomitant]
  4. FUROSEMIDE [Concomitant]
  5. LANTUS [Concomitant]
  6. ZOCOR [Concomitant]
  7. ASPIRIN [Concomitant]
  8. MICARDIS [Concomitant]
  9. NOVOLOG [Concomitant]
  10. LEXAPRO [Concomitant]
  11. IRON (IRON) [Concomitant]
  12. MAGNESIUM (MAGNESIUM) [Concomitant]
  13. AMLODIPINE [Concomitant]
  14. ATENOLOL [Concomitant]
  15. RENAGEL [Concomitant]

REACTIONS (2)
  - APPETITE DISORDER [None]
  - FATIGUE [None]
